FAERS Safety Report 22657951 (Version 1)
Quarter: 2023Q2

REPORT INFORMATION
  Report Type: Spontaneous
  Country: IR (occurrence: IR)
  Receive Date: 20230630
  Receipt Date: 20230630
  Transmission Date: 20230722
  Serious: Yes (Death, Other)
  Sender: FDA-Public Use
  Company Number: IR-002147023-NVSC2023IR147078

PATIENT
  Age: 63 Year
  Sex: Female

DRUGS (1)
  1. METHOTREXATE [Suspect]
     Active Substance: METHOTREXATE
     Indication: Central nervous system lymphoma
     Dosage: 3 G/M2 (FOUR CYCLES OF HIGH-DOSE)
     Route: 065

REACTIONS (3)
  - Pancytopenia [Fatal]
  - Pyrexia [Fatal]
  - Product use in unapproved indication [Unknown]
